FAERS Safety Report 5012294-2 (Version None)
Quarter: 2006Q2

REPORT INFORMATION
  Report Type: 
  Country: None (occurrence: None)
  Receive Date: 20060524
  Receipt Date: 20060512
  Transmission Date: 20061013
  Serious: Yes (Hospitalization)
  Sender: FDA-Public Use
  Company Number: RS006014-J

PATIENT
  Age: 86 Year
  Sex: Male
  Weight: 41 kg

DRUGS (7)
  1. RABEPRAZOLE SODIUM [Suspect]
     Indication: GASTRIC ULCER
     Dosage: 20 MG, 2 IN 1 D, ORAL
     Route: 048
     Dates: start: 20060323, end: 20060510
  2. HARNAL (TAMSULOSIN HYDROCHLORIDE) [Concomitant]
  3. MICARDIS [Concomitant]
  4. FURULMINE (FURSULTIAMINE) [Concomitant]
  5. PRONON (PROPAFENONE HYDROCHLORIDE) [Concomitant]
  6. MARZULENE S (MARZULENE S) [Concomitant]
  7. BLOPRESS (CANDESARTAN CILEXETIL) [Concomitant]

REACTIONS (1)
  - EOSINOPHIL COUNT INCREASED [None]
